FAERS Safety Report 5412143-4 (Version None)
Quarter: 2007Q3

REPORT INFORMATION
  Report Type: 
  Country: None (occurrence: None)
  Receive Date: 20070813
  Receipt Date: 20070807
  Transmission Date: 20080115
  Serious: Yes (Hospitalization)
  Sender: FDA-Public Use
  Company Number: HQWYE413707AUG07

PATIENT
  Sex: Male

DRUGS (6)
  1. CORDARONE [Suspect]
     Route: 065
  2. CORDARONE [Suspect]
     Route: 065
     Dates: start: 20070619, end: 20070704
  3. CORDARONE [Suspect]
     Route: 065
     Dates: start: 20070704
  4. DIGOXIN [Concomitant]
     Route: 065
  5. VANCOMYCIN [Concomitant]
     Route: 065
  6. DILTIAZEM [Concomitant]
     Route: 065

REACTIONS (2)
  - CARDIAC DISORDER [None]
  - NAUSEA [None]
